FAERS Safety Report 6400191-7 (Version None)
Quarter: 2009Q4

REPORT INFORMATION
  Report Type: 
  Country: None (occurrence: None)
  Receive Date: 20091014
  Receipt Date: 20091006
  Transmission Date: 20100525
  Serious: Yes (Hospitalization, Other)
  Sender: FDA-Public Use
  Company Number: FR-JNJFOC-20091001659

PATIENT
  Age: 60 Year
  Sex: Male

DRUGS (6)
  1. TAVANIC [Suspect]
     Indication: DRUG USE FOR UNKNOWN INDICATION
     Route: 048
     Dates: end: 20090827
  2. CO-TRIATEC [Suspect]
     Indication: DRUG USE FOR UNKNOWN INDICATION
     Dosage: 5+12.5 MG, 2 TABLETS DAILY
     Route: 048
     Dates: end: 20090827
  3. FLUINDIONE [Suspect]
     Indication: DRUG USE FOR UNKNOWN INDICATION
     Dosage: 10 OR 15 MG
     Route: 048
     Dates: end: 20090827
  4. OXACILLIN [Suspect]
     Indication: DRUG USE FOR UNKNOWN INDICATION
     Dosage: 5+12.5 MG, 2 TABLETS DAILY
     Route: 042
     Dates: end: 20090827
  5. FUROSEMIDE BIOGARAN [Suspect]
     Indication: DRUG USE FOR UNKNOWN INDICATION
     Dosage: 5+12.5 MG, 2 TABLETS DAILY
     Route: 048
     Dates: end: 20090827
  6. METFORMIN HCL [Suspect]
     Indication: TYPE 2 DIABETES MELLITUS
     Dosage: 5+12.5 MG, 2 TABLETS DAILY
     Route: 048
     Dates: end: 20090827

REACTIONS (7)
  - ANAEMIA [None]
  - CONDITION AGGRAVATED [None]
  - HEPATOSPLENOMEGALY [None]
  - LEUKOPENIA [None]
  - MYELODYSPLASTIC SYNDROME [None]
  - RENAL FAILURE ACUTE [None]
  - THROMBOCYTOPENIA [None]
